FAERS Safety Report 13002876 (Version 1)
Quarter: 2016Q4

REPORT INFORMATION
  Report Type: Spontaneous
  Country: US (occurrence: US)
  Receive Date: 20161206
  Receipt Date: 20161206
  Transmission Date: 20170207
  Serious: Yes (Hospitalization, Other)
  Sender: FDA-Public Use
  Company Number: None

PATIENT
  Age: 20 Year
  Sex: Male
  Weight: 99 kg

DRUGS (5)
  1. DEXTROAMPHET SACCHARAT, AMPHET ASPARTATE, DEXTROAMPHET SULFATE AND AMPHET SULFAT [Suspect]
     Active Substance: AMPHETAMINE ASPARTATE\AMPHETAMINE SULFATE\DEXTROAMPHETAMINE SACCHARATE\DEXTROAMPHETAMINE SULFATE
     Indication: ATTENTION DEFICIT/HYPERACTIVITY DISORDER
     Dosage: ?          QUANTITY:180 TABLET(S);?
     Route: 048
  2. ADDERALL [Concomitant]
     Active Substance: AMPHETAMINE ASPARTATE\AMPHETAMINE SULFATE\DEXTROAMPHETAMINE SACCHARATE\DEXTROAMPHETAMINE SULFATE
  3. NEURONTIN [Concomitant]
     Active Substance: GABAPENTIN
  4. LAMICTAL [Concomitant]
     Active Substance: LAMOTRIGINE
  5. VISTARIL [Concomitant]
     Active Substance: HYDROXYZINE PAMOATE

REACTIONS (10)
  - Dysphonia [None]
  - Product quality issue [None]
  - Dry skin [None]
  - Product substitution issue [None]
  - Gastrointestinal disorder [None]
  - Abdominal discomfort [None]
  - Dyschezia [None]
  - Anxiety [None]
  - Dry eye [None]
  - Oropharyngeal pain [None]

NARRATIVE: CASE EVENT DATE: 20161122
